FAERS Safety Report 25268167 (Version 1)
Quarter: 2025Q2

REPORT INFORMATION
  Report Type: Other
  Country: ES (occurrence: ES)
  Receive Date: 20250505
  Receipt Date: 20250505
  Transmission Date: 20250716
  Serious: Yes (Hospitalization)
  Sender: STRIDES
  Company Number: None

PATIENT
  Age: 68 Year
  Sex: Female

DRUGS (2)
  1. GABAPENTIN [Suspect]
     Active Substance: GABAPENTIN
     Indication: Pain
     Route: 048
     Dates: start: 20200807, end: 20200813
  2. METAMIZOL [Suspect]
     Active Substance: METAMIZOLE SODIUM
     Indication: Pain
     Route: 042
     Dates: start: 20200807, end: 20200814

REACTIONS (2)
  - Condition aggravated [Recovered/Resolved]
  - Pancreatitis acute [Recovered/Resolved]

NARRATIVE: CASE EVENT DATE: 20200814
